FAERS Safety Report 5565238-9 (Version None)
Quarter: 2007Q4

REPORT INFORMATION
  Report Type: 
  Country: None (occurrence: None)
  Receive Date: 20071218
  Receipt Date: 20071207
  Transmission Date: 20080405
  Serious: Yes (Life-Threatening, Hospitalization, Other)
  Sender: FDA-Public Use
  Company Number: US-AMGEN-US247384

PATIENT
  Sex: Female
  Weight: 78.1 kg

DRUGS (10)
  1. PROCRIT [Suspect]
     Indication: RENAL FAILURE CHRONIC
     Route: 058
     Dates: start: 20070323, end: 20070925
  2. CALCITRIOL [Concomitant]
     Route: 048
  3. MULTIVITAMINS AND IRON [Concomitant]
  4. COZAAR [Concomitant]
     Route: 048
  5. NIFEREX [Concomitant]
     Route: 048
  6. ECHINACEA EXTRACT [Concomitant]
     Route: 048
  7. ALLEGRA [Concomitant]
  8. CYTOXAN [Concomitant]
  9. PREDNISONE [Concomitant]
  10. IMMUNOGLOBULINS [Concomitant]
     Route: 042

REACTIONS (3)
  - ANTI-ERYTHROPOIETIN ANTIBODY POSITIVE [None]
  - APLASIA PURE RED CELL [None]
  - NEUTRALISING ANTIBODIES POSITIVE [None]
